FAERS Safety Report 9242639 (Version 3)
Quarter: 2013Q3

REPORT INFORMATION
  Report Type: Spontaneous
  Country: FR (occurrence: FR)
  Receive Date: 20130419
  Receipt Date: 20130919
  Transmission Date: 20140515
  Serious: Yes (Life-Threatening, Hospitalization, Disabling)
  Sender: FDA-Public Use
  Company Number: FR-GLAXOSMITHKLINE-B0882262A

PATIENT
  Age: 65 Year
  Sex: Female

DRUGS (10)
  1. ARIXTRA [Suspect]
     Indication: PAIN IN EXTREMITY
     Dosage: 7.5MG SINGLE DOSE
     Route: 058
     Dates: start: 20130312, end: 20130312
  2. SIFROL [Concomitant]
     Dosage: 1.5MG TWICE PER DAY
     Route: 065
     Dates: start: 2011
  3. STALEVO [Concomitant]
     Dosage: 475MG PER DAY
     Route: 048
     Dates: start: 2011
  4. ALPRAZOLAM [Concomitant]
  5. AZILECT [Concomitant]
  6. MANTADIX [Concomitant]
  7. PROPANOLOL [Concomitant]
  8. RIVOTRIL [Concomitant]
  9. TRANSIPEG [Concomitant]
  10. MODOPAR [Concomitant]

REACTIONS (9)
  - Cerebral haematoma [Recovered/Resolved with Sequelae]
  - Subdural haematoma [Recovered/Resolved with Sequelae]
  - Neurological decompensation [Recovered/Resolved with Sequelae]
  - Brain oedema [Recovering/Resolving]
  - Miosis [Unknown]
  - Anaemia [Unknown]
  - Intracranial pressure increased [Unknown]
  - Cerebral haemorrhage [Unknown]
  - Pupils unequal [Unknown]
